FAERS Safety Report 18209617 (Version 9)
Quarter: 2021Q1

REPORT INFORMATION
  Report Type: Report from Study
  Country: US (occurrence: US)
  Receive Date: 20200828
  Receipt Date: 20210224
  Transmission Date: 20210419
  Serious: No
  Sender: FDA-Public Use
  Company Number: NVSC2020US237071

PATIENT
  Age: 76 Year
  Sex: Male

DRUGS (1)
  1. ENTRESTO [Suspect]
     Active Substance: SACUBITRIL\VALSARTAN
     Indication: PRODUCT USED FOR UNKNOWN INDICATION
     Dosage: 100 MG, BID (49/51)
     Route: 048
     Dates: start: 2019

REACTIONS (11)
  - Weight decreased [Unknown]
  - Memory impairment [Unknown]
  - Head injury [Unknown]
  - Hiccups [Unknown]
  - Limb injury [Unknown]
  - Cough [Recovering/Resolving]
  - Productive cough [Unknown]
  - Condition aggravated [Unknown]
  - Fall [Unknown]
  - Decreased activity [Unknown]
  - Product dispensing error [Unknown]

NARRATIVE: CASE EVENT DATE: 2019
